FAERS Safety Report 11513803 (Version 2)
Quarter: 2015Q4

REPORT INFORMATION
  Report Type: Spontaneous
  Country: US (occurrence: US)
  Receive Date: 20150916
  Receipt Date: 20151005
  Transmission Date: 20160304
  Serious: No
  Sender: FDA-Public Use
  Company Number: US-PFIZER INC-2015297302

PATIENT
  Age: 63 Year
  Sex: Male

DRUGS (11)
  1. PANTOPRAZOLE SODIUM. [Concomitant]
     Active Substance: PANTOPRAZOLE SODIUM
     Dosage: 1 DF (1 TABLET), DAILY
  2. ASPIRIN. [Concomitant]
     Active Substance: ASPIRIN
     Indication: CARDIAC DISORDER
     Dosage: 1 DF, DAILY
  3. HYDROCODONE [Concomitant]
     Active Substance: HYDROCODONE
     Indication: BACK PAIN
     Dosage: UNK, 4X/DAY
     Dates: start: 1990
  4. ROPINIROLE. [Concomitant]
     Active Substance: ROPINIROLE
     Dosage: UNK
     Dates: start: 2013
  5. FINASTERIDE. [Concomitant]
     Active Substance: FINASTERIDE
     Indication: PROSTATIC DISORDER
     Dosage: 1 DF, DAILY
     Dates: start: 2013
  6. LYRICA [Suspect]
     Active Substance: PREGABALIN
     Indication: PAIN IN EXTREMITY
     Dosage: UNK, 2X/DAY ( 1 DOSAGE FORM (DF) IN THE AM AND 1 DF IN THE PM)
     Dates: start: 2014
  7. CARBIDOPA/LEVODOPA [Concomitant]
     Indication: PAIN IN EXTREMITY
     Dosage: UNK, 3X/DAY
     Dates: start: 2013
  8. PLAVIX [Concomitant]
     Active Substance: CLOPIDOGREL BISULFATE
     Indication: BLOOD DISORDER
     Dosage: 1 DF, DAILY
     Dates: start: 2013
  9. HYDROCODONE [Concomitant]
     Active Substance: HYDROCODONE
     Indication: PAIN IN EXTREMITY
  10. NOVOLOG [Concomitant]
     Active Substance: INSULIN ASPART
     Dosage: UNK
     Dates: start: 1965
  11. VITAMIN D3 [Concomitant]
     Active Substance: CHOLECALCIFEROL
     Dosage: UNK
     Dates: start: 2013

REACTIONS (1)
  - Drug withdrawal syndrome [Unknown]
